FAERS Safety Report 4681122-7 (Version None)
Quarter: 2005Q2

REPORT INFORMATION
  Report Type: 
  Country: None (occurrence: None)
  Receive Date: 20050601
  Receipt Date: 20050516
  Transmission Date: 20051028
  Serious: Yes (Hospitalization, Other)
  Sender: FDA-Public Use
  Company Number: USA050598082

PATIENT
  Age: 51 Year
  Sex: Female
  Weight: 105 kg

DRUGS (9)
  1. HUMALOG [Suspect]
     Indication: DIABETES MELLITUS
     Dates: start: 20040101
  2. HUMULIN 70/30 [Suspect]
     Indication: DIABETES MELLITUS
     Dates: end: 20040101
  3. VANCOMYCIN [Suspect]
     Indication: STAPHYLOCOCCAL INFECTION
     Dates: start: 20040501, end: 20040101
  4. VANCOMYCIN [Suspect]
     Indication: STAPHYLOCOCCAL INFECTION
     Dates: start: 20040101, end: 20040101
  5. LANTUS [Concomitant]
  6. METFORMIN HCL [Concomitant]
  7. AVANDIA [Concomitant]
  8. IRBESARTAN [Concomitant]
  9. HYDROCHLOROTHIAZIDE [Concomitant]

REACTIONS (14)
  - ANXIETY [None]
  - BODY TEMPERATURE INCREASED [None]
  - DIABETES MELLITUS INADEQUATE CONTROL [None]
  - DRUG ADMINISTRATION ERROR [None]
  - GLYCOSYLATED HAEMOGLOBIN INCREASED [None]
  - HYPOTENSION [None]
  - INSOMNIA [None]
  - MEDICAL DEVICE COMPLICATION [None]
  - POSTOPERATIVE INFECTION [None]
  - REFUSAL OF TREATMENT BY PATIENT [None]
  - SOMNOLENCE [None]
  - SPINAL ROD INSERTION [None]
  - STAPHYLOCOCCAL INFECTION [None]
  - TREMOR [None]
